FAERS Safety Report 4913209-5 (Version None)
Quarter: 2006Q1

REPORT INFORMATION
  Report Type: 
  Country: None (occurrence: None)
  Receive Date: 20060215
  Receipt Date: 20051205
  Transmission Date: 20060701
  Serious: Yes (Hospitalization, Other)
  Sender: FDA-Public Use
  Company Number: US-MERCK-0512USA00676

PATIENT
  Age: 91 Year
  Sex: Male
  Weight: 98 kg

DRUGS (8)
  1. VIOXX [Suspect]
     Indication: ARTHRALGIA
     Route: 048
     Dates: start: 20001220, end: 20040714
  2. PLAVIX [Concomitant]
     Route: 065
  3. ACCUPRIL [Concomitant]
     Route: 065
  4. ISOSORBIDE MONONITRATE ER [Concomitant]
     Route: 065
  5. ASPIRIN [Concomitant]
     Route: 065
  6. PREVACID [Concomitant]
     Route: 065
  7. FLOMAX (MORNIFLUMATE) [Concomitant]
     Route: 065
  8. [THERAPY UNSPECIFIED] [Concomitant]
     Route: 065

REACTIONS (4)
  - CEREBROVASCULAR ACCIDENT [None]
  - DYSPNOEA [None]
  - HEART VALVE REPLACEMENT [None]
  - WHOLE BLOOD TRANSFUSION [None]
